FAERS Safety Report 4902201-2 (Version None)
Quarter: 2006Q1

REPORT INFORMATION
  Report Type: 
  Country: None (occurrence: None)
  Receive Date: 20060207
  Receipt Date: 20060127
  Transmission Date: 20060701
  Serious: Yes (Hospitalization)
  Sender: FDA-Public Use
  Company Number: JP-ROCHE-434567

PATIENT
  Age: 54 Year

DRUGS (1)
  1. TAMIFLU [Suspect]
     Route: 048
     Dates: start: 20060106, end: 20060116

REACTIONS (1)
  - PSYCHIATRIC SYMPTOM [None]
